APPROVED DRUG PRODUCT: PHENAPHEN W/ CODEINE NO. 4
Active Ingredient: ACETAMINOPHEN; CODEINE PHOSPHATE
Strength: 325MG;60MG
Dosage Form/Route: CAPSULE;ORAL
Application: A084446 | Product #001
Applicant: AH ROBINS CO
Approved: Approved Prior to Jan 1, 1982 | RLD: Yes | RS: No | Type: DISCN